FAERS Safety Report 14169928 (Version 1)
Quarter: 2017Q4

REPORT INFORMATION
  Report Type: Spontaneous
  Country: US (occurrence: US)
  Receive Date: 20171108
  Receipt Date: 20171108
  Transmission Date: 20180321
  Serious: No
  Sender: FDA-Public Use
  Company Number: US-009507513-1710USA015259

PATIENT
  Sex: Female

DRUGS (2)
  1. ZEPATIER [Suspect]
     Active Substance: ELBASVIR\GRAZOPREVIR
     Indication: HEPATITIS C
     Dosage: 1 TABLET (50/100 MG), EVERY DAY
     Route: 048
     Dates: start: 201707, end: 20171025
  2. ALEVE [Concomitant]
     Active Substance: NAPROXEN SODIUM

REACTIONS (3)
  - Chronic obstructive pulmonary disease [Unknown]
  - Fatigue [Unknown]
  - Dyspnoea [Unknown]

NARRATIVE: CASE EVENT DATE: 2017
